FAERS Safety Report 5081108-7 (Version None)
Quarter: 2006Q3

REPORT INFORMATION
  Report Type: 
  Country: None (occurrence: None)
  Receive Date: 20060816
  Receipt Date: 20060807
  Transmission Date: 20061208
  Serious: Yes (Hospitalization)
  Sender: FDA-Public Use
  Company Number: JP-JNJFOC-20060801836

PATIENT
  Age: 34 Year
  Sex: Male
  Weight: 57 kg

DRUGS (12)
  1. REMICADE [Suspect]
     Route: 042
  2. REMICADE [Suspect]
     Route: 042
  3. REMICADE [Suspect]
     Route: 042
  4. REMICADE [Suspect]
     Route: 042
  5. REMICADE [Suspect]
     Indication: CROHN'S DISEASE
     Route: 042
  6. PREDONINE [Concomitant]
  7. GASTER D [Concomitant]
     Route: 048
  8. LOPEMIN [Concomitant]
     Route: 048
  9. BIOFERMIN [Concomitant]
     Route: 048
  10. ALBUMIN TANNATE [Concomitant]
     Route: 048
  11. ADSORBIN [Concomitant]
     Route: 048
  12. PHELLOBERIN A [Concomitant]
     Route: 048

REACTIONS (5)
  - DYSPNOEA [None]
  - INFUSION RELATED REACTION [None]
  - PERIPHERAL COLDNESS [None]
  - TACHYCARDIA [None]
  - TREMOR [None]
